FAERS Safety Report 5957863-8 (Version None)
Quarter: 2008Q4

REPORT INFORMATION
  Report Type: 
  Country: None (occurrence: None)
  Receive Date: 20081119
  Receipt Date: 20081107
  Transmission Date: 20090506
  Serious: Yes (Other)
  Sender: FDA-Public Use
  Company Number: US-ROCHE-532345

PATIENT
  Sex: Male
  Weight: 157 kg

DRUGS (5)
  1. PEG-INTERFERON A-2A (RO 25-8310) [Suspect]
     Dosage: FORM: PRE-FILLED SYRINGE
     Route: 065
     Dates: start: 20071005, end: 20080829
  2. RIBAVIRIN [Suspect]
     Route: 065
     Dates: start: 20071005, end: 20080829
  3. ADVIL [Concomitant]
  4. PAXIL [Concomitant]
  5. ASPIRIN [Concomitant]
     Dosage: TAKEN EVERYDAY PATIENT WAS INSTRUCTED TO DECREASE ASPIRIN

REACTIONS (5)
  - ANKLE FRACTURE [None]
  - AZOOSPERMIA [None]
  - EYE DISORDER [None]
  - FALL [None]
  - RIB FRACTURE [None]
